FAERS Safety Report 8181207 (Version 5)
Quarter: 2014Q1

REPORT INFORMATION
  Report Type: Report from Study
  Country: JP (occurrence: JP)
  Receive Date: 20111014
  Receipt Date: 20140317
  Transmission Date: 20141002
  Serious: Yes (Hospitalization, Other)
  Sender: FDA-Public Use
  Company Number: PHHY2011JP88234

PATIENT
  Age: 81 Year
  Sex: Female
  Weight: 40 kg

DRUGS (9)
  1. AMN107 [Suspect]
     Indication: CHRONIC MYELOID LEUKAEMIA
     Dosage: 400 MG, DAILY
     Route: 048
     Dates: start: 20090928, end: 20100312
  2. TAKEPRON [Concomitant]
     Dosage: 15 MG, DAILY
     Route: 048
     Dates: start: 20090928
  3. DEPAKENE-R [Concomitant]
     Dosage: 400 MG, UNK
     Route: 048
     Dates: start: 20090928
  4. ALLOZYM [Concomitant]
     Dosage: 100 MG, DAILY
     Route: 048
     Dates: start: 20090928
  5. LASIX [Concomitant]
     Dosage: 20 MG, DAILY
     Route: 048
     Dates: start: 20090928
  6. CAMOSTAT MESILATE [Concomitant]
     Dosage: 600 MG, DAILY
     Route: 048
     Dates: start: 20090928
  7. URSO [Concomitant]
     Dosage: 600 MG, DAILY
     Route: 048
     Dates: start: 20090928
  8. GLYCYRON [Concomitant]
     Dosage: 6 DF, DAILY
     Route: 048
     Dates: start: 20090928
  9. BISOLVON [Concomitant]

REACTIONS (7)
  - Pleural effusion [Not Recovered/Not Resolved]
  - Fluid retention [Not Recovered/Not Resolved]
  - Lipase increased [Recovered/Resolved]
  - Blood bilirubin increased [Not Recovered/Not Resolved]
  - Weight increased [Unknown]
  - Blood potassium decreased [Recovered/Resolved]
  - Aspartate aminotransferase increased [Not Recovered/Not Resolved]
